FAERS Safety Report 8972196 (Version 2)
Quarter: 2013Q1

REPORT INFORMATION
  Report Type: Spontaneous
  Country: NO (occurrence: NO)
  Receive Date: 20121219
  Receipt Date: 20130313
  Transmission Date: 20140127
  Serious: Yes (Hospitalization)
  Sender: FDA-Public Use
  Company Number: NO-PFIZER INC-2012317960

PATIENT
  Age: 72 Year
  Sex: Male

DRUGS (7)
  1. IRINOTECAN HCL [Suspect]
     Indication: COLON CANCER
     Dates: start: 20121105
  2. FLUOROURACIL [Suspect]
     Indication: COLON CANCER
     Dates: start: 20121105
  3. AVASTIN [Suspect]
     Indication: COLON CANCER
     Dates: start: 20121105
  4. ONDANSETRON [Concomitant]
     Dates: start: 20121105
  5. CALCIUM FOLINATE [Concomitant]
     Dates: start: 20121105
  6. ATROPINE [Concomitant]
     Dates: start: 20121105
  7. FORTECORTIN [Concomitant]
     Dates: start: 20121105

REACTIONS (3)
  - Muscular weakness [Recovering/Resolving]
  - Gait disturbance [Recovering/Resolving]
  - Muscle twitching [Recovered/Resolved]
